FAERS Safety Report 4951654-2 (Version None)
Quarter: 2006Q1

REPORT INFORMATION
  Report Type: 
  Country: None (occurrence: None)
  Receive Date: 20060317
  Receipt Date: 20060306
  Transmission Date: 20060701
  Serious: Yes (Death)
  Sender: FDA-Public Use
  Company Number: 2006035461

PATIENT
  Sex: Female

DRUGS (3)
  1. AMLODIPINE [Suspect]
     Indication: ILL-DEFINED DISORDER
  2. DOXAZOSIN (DOXAZOSIN) [Suspect]
     Indication: ILL-DEFINED DISORDER
  3. LIPITOR [Suspect]
     Indication: ILL-DEFINED DISORDER
     Dosage: ORAL
     Route: 048

REACTIONS (1)
  - ANAPHYLACTIC REACTION [None]
